FAERS Safety Report 5589297-2 (Version None)
Quarter: 2008Q1

REPORT INFORMATION
  Report Type: 
  Country: None (occurrence: None)
  Receive Date: 20080109
  Receipt Date: 20080109
  Transmission Date: 20080703
  Serious: Yes (Hospitalization, Other)
  Sender: FDA-Public Use
  Company Number: None

PATIENT
  Age: 80 Year
  Sex: Female
  Weight: 70.3075 kg

DRUGS (2)
  1. CLINDAMYCIN HCL [Suspect]
     Indication: CELLULITIS
     Dosage: 300MG 3X PER DAY PO
     Route: 048
     Dates: start: 20070928, end: 20071011
  2. WARFARIN SODIUM [Suspect]
     Indication: DEEP VEIN THROMBOSIS
     Dosage: 5MG PER DAY PO
     Route: 048
     Dates: start: 20070928, end: 20071011

REACTIONS (2)
  - INTERNATIONAL NORMALISED RATIO INCREASED [None]
  - INTRA-ABDOMINAL HAEMATOMA [None]
